FAERS Safety Report 9962919 (Version 1)
Quarter: 2014Q1

REPORT INFORMATION
  Report Type: Report from Study
  Country: US (occurrence: US)
  Receive Date: 20140305
  Receipt Date: 20140305
  Transmission Date: 20141002
  Serious: No
  Sender: FDA-Public Use
  Company Number: US-ABBVIE-13P-163-1114665-00

PATIENT
  Age: 56 Year
  Sex: Male

DRUGS (7)
  1. HUMIRA [Suspect]
     Indication: PSORIASIS
     Dates: start: 201301
  2. BISOPROLOL [Concomitant]
     Indication: HYPERTENSION
     Dosage: 5 MG DAILY
  3. QUINAPRIL [Concomitant]
     Indication: HYPERTENSION
     Dosage: 40 MG DAILY
  4. HYDROCHLOROTHIAZIDE [Concomitant]
     Indication: HYPERTENSION
     Dosage: 25 MG DAILY
  5. LOVASTATIN [Concomitant]
     Indication: BLOOD CHOLESTEROL INCREASED
     Dosage: 20 MG DAILY
  6. GLIPIZIDE METFORMIN [Concomitant]
     Indication: DIABETES MELLITUS
     Dosage: 5-5MG 2 TABS TWICE DAILY
  7. ANDROGEL [Concomitant]
     Indication: BLOOD TESTOSTERONE
     Dosage: 1.2 MG 2 PUMPS DAILY

REACTIONS (1)
  - Nasopharyngitis [Not Recovered/Not Resolved]
